FAERS Safety Report 8846145 (Version 3)
Quarter: 2013Q2

REPORT INFORMATION
  Report Type: Spontaneous
  Country: US (occurrence: US)
  Receive Date: 20121017
  Receipt Date: 20130627
  Transmission Date: 20140414
  Serious: Yes (Hospitalization, Other)
  Sender: FDA-Public Use
  Company Number: US-009507513-1210USA005850

PATIENT
  Sex: Female
  Weight: 62 kg

DRUGS (4)
  1. FOSAMAX [Suspect]
     Indication: OSTEOPOROSIS
     Dosage: 10 MG, UNK
     Route: 048
     Dates: start: 20000706, end: 200108
  2. FOSAMAX [Suspect]
     Dosage: 70 MG, UNK
     Route: 048
     Dates: start: 20010907, end: 20051231
  3. BONIVA [Suspect]
     Indication: OSTEOPOROSIS
     Dosage: 150 MG, UNK
     Dates: start: 200512, end: 201001
  4. ALENDRONATE SODIUM [Suspect]
     Dosage: UNK
     Dates: start: 2005

REACTIONS (16)
  - Internal fixation of fracture [Unknown]
  - Intramedullary rod insertion [Unknown]
  - Abdominal hernia [Unknown]
  - Cholecystectomy [Unknown]
  - Gallbladder operation [Unknown]
  - Femur fracture [Unknown]
  - Femur fracture [Unknown]
  - Low turnover osteopathy [Unknown]
  - Dental implantation [Unknown]
  - Dental cleaning [Unknown]
  - Osteopenia [Unknown]
  - Appendicectomy [Unknown]
  - Blood immunoglobulin A increased [Unknown]
  - Bence Jones proteinuria [Unknown]
  - Bone marrow disorder [Unknown]
  - Incorrect drug administration duration [Unknown]
